FAERS Safety Report 20773274 (Version 1)
Quarter: 2022Q2

REPORT INFORMATION
  Report Type: Report from Study
  Country: CO (occurrence: CO)
  Receive Date: 20220502
  Receipt Date: 20220502
  Transmission Date: 20220721
  Serious: Yes (Hospitalization, Other)
  Sender: FDA-Public Use
  Company Number: CO-ASTELLAS-2022US005367

PATIENT
  Age: 36 Year
  Sex: Male
  Weight: 64 kg

DRUGS (2)
  1. TACROLIMUS [Suspect]
     Active Substance: TACROLIMUS
     Indication: Renal transplant
     Route: 048
     Dates: start: 20190305
  2. TACROLIMUS [Suspect]
     Active Substance: TACROLIMUS
     Route: 048
     Dates: start: 20190319

REACTIONS (5)
  - Secondary immunodeficiency [Unknown]
  - Influenza [Recovering/Resolving]
  - Nasal congestion [Unknown]
  - Micturition frequency decreased [Unknown]
  - Malaise [Unknown]

NARRATIVE: CASE EVENT DATE: 20211201
